FAERS Safety Report 13323669 (Version 2)
Quarter: 2017Q1

REPORT INFORMATION
  Report Type: Spontaneous
  Country: US (occurrence: US)
  Receive Date: 20170310
  Receipt Date: 20170320
  Transmission Date: 20170428
  Serious: No
  Sender: FDA-Public Use
  Company Number: US-PFIZER INC-2017097434

PATIENT
  Age: 67 Year
  Sex: Female

DRUGS (1)
  1. XELJANZ XR [Suspect]
     Active Substance: TOFACITINIB CITRATE
     Indication: RHEUMATOID ARTHRITIS
     Dosage: 11 MG, UNK

REACTIONS (8)
  - Nodal osteoarthritis [Unknown]
  - Oedema [Unknown]
  - Pain in extremity [Unknown]
  - Peripheral swelling [Unknown]
  - Wrist deformity [Unknown]
  - Bursa disorder [Unknown]
  - Joint crepitation [Unknown]
  - Arthralgia [Unknown]
